FAERS Safety Report 8524828-1 (Version None)
Quarter: 2012Q3

REPORT INFORMATION
  Report Type: 
  Country: None (occurrence: None)
  Receive Date: 20120720
  Receipt Date: 20120718
  Transmission Date: 20120928
  Serious: Yes (Other)
  Sender: FDA-Public Use
  Company Number: US-GLAXOSMITHKLINE-Z0015523A

PATIENT
  Age: 57 Year
  Sex: Male
  Weight: 109 kg

DRUGS (10)
  1. WARFARIN SODIUM [Concomitant]
     Dosage: 2.5MG THREE TIMES PER WEEK
     Route: 048
     Dates: start: 20120518, end: 20120530
  2. WARFARIN SODIUM [Concomitant]
     Indication: THROMBOSIS
     Dosage: 5MG PER DAY
     Route: 048
     Dates: start: 20120508, end: 20120510
  3. WARFARIN SODIUM [Concomitant]
     Dosage: 2.5MG FIVE TIMES PER WEEK
     Route: 048
     Dates: start: 20120531
  4. WARFARIN SODIUM [Concomitant]
     Dosage: 5MG FOUR TIMES PER WEEK
     Route: 048
     Dates: start: 20120518, end: 20120530
  5. PAZOPANIB [Suspect]
     Indication: RENAL CELL CARCINOMA
     Dosage: 600MG PER DAY
     Route: 048
     Dates: start: 20120413
  6. WARFARIN SODIUM [Concomitant]
     Dosage: 7.5MG PER DAY
     Route: 048
     Dates: start: 20120511, end: 20120517
  7. MULTI-VITAMINS [Concomitant]
     Indication: SUPPLEMENTATION THERAPY
     Dosage: 2TAB PER DAY
     Route: 048
  8. TYLENOL [Concomitant]
     Indication: PAIN
     Dosage: 500MG AS REQUIRED
     Route: 048
  9. LOVENOX [Concomitant]
     Indication: DEEP VEIN THROMBOSIS
     Dosage: 100MG TWICE PER DAY
     Route: 058
     Dates: start: 20120508, end: 20120511
  10. WARFARIN SODIUM [Concomitant]
     Dosage: 5MG TWO TIMES PER WEEK
     Route: 048
     Dates: start: 20120531

REACTIONS (1)
  - POLYCYTHAEMIA [None]
